FAERS Safety Report 10739578 (Version 1)
Quarter: 2015Q1

REPORT INFORMATION
  Report Type: Spontaneous
  Country: US (occurrence: US)
  Receive Date: 20150126
  Receipt Date: 20150126
  Transmission Date: 20150721
  Serious: Yes (Hospitalization)
  Sender: FDA-Public Use
  Company Number: US-JNJFOC-20150108932

PATIENT
  Age: 18 Year
  Sex: Male

DRUGS (1)
  1. TYLENOL PM [Suspect]
     Active Substance: ACETAMINOPHEN\DIPHENHYDRAMINE
     Indication: INSOMNIA
     Dosage: 20 TABLETS; 3 TABLETS EACH NIGHT LAST WEEK
     Route: 048
     Dates: start: 20051204

REACTIONS (6)
  - Dry mouth [Recovered/Resolved]
  - Incorrect dose administered [Unknown]
  - Intentional overdose [Recovered/Resolved]
  - Transaminases increased [Recovered/Resolved]
  - Product use issue [Unknown]
  - Suicide attempt [Recovered/Resolved]

NARRATIVE: CASE EVENT DATE: 20051204
